FAERS Safety Report 4621668-0 (Version None)
Quarter: 2005Q1

REPORT INFORMATION
  Report Type: 
  Country: None (occurrence: None)
  Receive Date: 20050328
  Receipt Date: 20050314
  Transmission Date: 20050727
  Serious: Yes (Life-Threatening, Hospitalization, Other)
  Sender: FDA-Public Use
  Company Number: 2005027347

PATIENT
  Age: 65 Year
  Sex: Female

DRUGS (10)
  1. GEODON [Suspect]
     Indication: BIPOLAR DISORDER
     Dosage: 140 MG (2 IN 1 D), ORAL
     Route: 048
  2. GEODON [Suspect]
     Indication: DELUSION
     Dosage: 140 MG (2 IN 1 D), ORAL
     Route: 048
  3. GEODON [Suspect]
     Indication: PSYCHOTIC DISORDER
     Dosage: 140 MG (2 IN 1 D), ORAL
     Route: 048
  4. ASPIRIN [Concomitant]
  5. VALPROATE SODIUM [Concomitant]
  6. CONJUGATED ESTROGENS [Concomitant]
  7. NICOTINE [Concomitant]
  8. LEVOTHYROXINE SODIUM [Concomitant]
  9. DIAZEPAM [Concomitant]
  10. PYRIDOXINE HCL [Concomitant]

REACTIONS (35)
  - ANAEMIA [None]
  - AORTIC ANEURYSM [None]
  - ARTHRALGIA [None]
  - ARTHRITIS [None]
  - ASTHENIA [None]
  - BENIGN OVARIAN TUMOUR [None]
  - BRADYCARDIA [None]
  - CARDIAC ENZYMES INCREASED [None]
  - CARDIAC STRESS TEST ABNORMAL [None]
  - CEREBROVASCULAR ACCIDENT [None]
  - CHRONIC OBSTRUCTIVE PULMONARY DISEASE [None]
  - CORONARY ARTERY OCCLUSION [None]
  - CORONARY ARTERY SURGERY [None]
  - DEPRESSION [None]
  - DYSAESTHESIA [None]
  - ELECTROCARDIOGRAM POOR R-WAVE PROGRESSION [None]
  - ELECTROCARDIOGRAM QT CORRECTED INTERVAL PROLONGED [None]
  - ELECTROCARDIOGRAM QT PROLONGED [None]
  - ELECTROENCEPHALOGRAM ABNORMAL [None]
  - FEMORAL ARTERIAL STENOSIS [None]
  - GASTROOESOPHAGEAL REFLUX DISEASE [None]
  - HYPERLIPIDAEMIA [None]
  - HYPERTENSION [None]
  - HYPOTHYROIDISM [None]
  - INTRACRANIAL ANEURYSM [None]
  - MANIA [None]
  - MYOCARDIAL INFARCTION [None]
  - OSTEOARTHRITIS [None]
  - PARAESTHESIA [None]
  - PERIPHERAL VASCULAR DISORDER [None]
  - PSYCHOTIC DISORDER [None]
  - RECTAL CANCER [None]
  - SCHIZOAFFECTIVE DISORDER [None]
  - TORSADE DE POINTES [None]
  - VENTRICULAR TACHYCARDIA [None]
